FAERS Safety Report 21830085 (Version 1)
Quarter: 2023Q1

REPORT INFORMATION
  Report Type: Spontaneous
  Country: US (occurrence: None)
  Receive Date: 20230105
  Receipt Date: 20230105
  Transmission Date: 20230417
  Serious: Yes (Hospitalization)
  Sender: FDA-Public Use
  Company Number: None

PATIENT
  Sex: Male

DRUGS (4)
  1. CAPECITABINE [Suspect]
     Active Substance: CAPECITABINE
     Dosage: FREQUENCY : TWICE A DAY;?
     Route: 048
  2. METHOTREXATE [Concomitant]
  3. FOLIC ACID [Concomitant]
  4. MIRTAZAPINE [Concomitant]

REACTIONS (4)
  - Fall [None]
  - Haemorrhage intracranial [None]
  - Fatigue [None]
  - Drug interaction [None]
